FAERS Safety Report 8906199 (Version 1)
Quarter: 2012Q4

REPORT INFORMATION
  Report Type: Spontaneous
  Country: US (occurrence: None)
  Receive Date: 20121112
  Receipt Date: 20121112
  Transmission Date: 20130627
  Serious: Yes (Life-Threatening)
  Sender: FDA-Public Use
  Company Number: None

PATIENT
  Sex: Female
  Weight: 79.38 kg

DRUGS (1)
  1. METFORMIN [Suspect]
     Indication: TYPE 2 DIABETES MELLITUS
     Dosage: 500MG THRE TIMES A DAY PO
     Route: 048
     Dates: start: 20121101, end: 20121109

REACTIONS (6)
  - Malaise [None]
  - Blood glucose increased [None]
  - Product odour abnormal [None]
  - Product quality issue [None]
  - Drug ineffective [None]
  - Product substitution issue [None]
